FAERS Safety Report 8162476-6 (Version None)
Quarter: 2012Q1

REPORT INFORMATION
  Report Type: 
  Country: None (occurrence: None)
  Receive Date: 20120224
  Receipt Date: 20120224
  Transmission Date: 20120608
  Serious: Yes (Other)
  Sender: FDA-Public Use
  Company Number: None

PATIENT
  Sex: Female
  Weight: 20.411 kg

DRUGS (1)
  1. DAYTRANA [Suspect]
     Indication: ATTENTION DEFICIT/HYPERACTIVITY DISORDER
     Dosage: 10MG PATCH
     Route: 062
     Dates: start: 20120222, end: 20120222

REACTIONS (11)
  - MANIA [None]
  - TIC [None]
  - NAUSEA [None]
  - CRYING [None]
  - ERYTHEMA [None]
  - HEADACHE [None]
  - DECREASED APPETITE [None]
  - AGGRESSION [None]
  - LETHARGY [None]
  - IRRITABILITY [None]
  - LOGORRHOEA [None]
